FAERS Safety Report 6308450-3 (Version None)
Quarter: 2009Q3

REPORT INFORMATION
  Report Type: 
  Country: None (occurrence: None)
  Receive Date: 20090811
  Receipt Date: 20090728
  Transmission Date: 20100115
  Serious: Yes (Death, Hospitalization)
  Sender: FDA-Public Use
  Company Number: KV200800168

PATIENT
  Age: 66 Year
  Sex: Male

DRUGS (3)
  1. MORPHINE SULFATE [Suspect]
     Indication: CANCER PAIN
     Dosage: 30 MG, BID, ORAL
     Route: 048
  2. MORPHINE SULFATE [Suspect]
     Indication: CANCER PAIN
     Dosage: 15 MG, BID, ORAL
     Route: 048
  3. MORPHNE INJECTIONS [Concomitant]

REACTIONS (6)
  - DYSSTASIA [None]
  - HYPERHIDROSIS [None]
  - MUSCULAR WEAKNESS [None]
  - PRODUCT QUALITY ISSUE [None]
  - SEDATION [None]
  - THROMBOSIS [None]
